FAERS Safety Report 18457864 (Version 1)
Quarter: 2020Q4

REPORT INFORMATION
  Report Type: Spontaneous
  Country: US (occurrence: US)
  Receive Date: 20201103
  Receipt Date: 20201103
  Transmission Date: 20210114
  Serious: Yes (Death, Life-Threatening, Hospitalization)
  Sender: FDA-Public Use
  Company Number: US-BAYER-2020-234831

PATIENT
  Age: 82 Year
  Sex: Female

DRUGS (3)
  1. CLOPIDOGREL [Interacting]
     Active Substance: CLOPIDOGREL BISULFATE
     Indication: ACUTE CORONARY SYNDROME
  2. ACETYLSALICYLIC ACID [Suspect]
     Active Substance: ASPIRIN
     Indication: ACUTE CORONARY SYNDROME
  3. ENOXAPARIN [Interacting]
     Active Substance: ENOXAPARIN
     Indication: ACUTE CORONARY SYNDROME
     Dosage: 1 MG/KG
     Route: 058

REACTIONS (7)
  - Shock haemorrhagic [None]
  - Multiple organ dysfunction syndrome [Fatal]
  - Hypotension [Fatal]
  - Labelled drug-drug interaction medication error [None]
  - Hypovolaemic shock [None]
  - Pelvic haematoma [None]
  - Abdominal wall haematoma [None]
